FAERS Safety Report 19518932 (Version 1)
Quarter: 2021Q3

REPORT INFORMATION
  Report Type: Spontaneous
  Country: IN (occurrence: IN)
  Receive Date: 20210712
  Receipt Date: 20210712
  Transmission Date: 20211014
  Serious: Yes (Hospitalization)
  Sender: FDA-Public Use
  Company Number: IN-LUPIN PHARMACEUTICALS INC.-2021-11463

PATIENT
  Age: 4 Year
  Sex: Male
  Weight: 15 kg

DRUGS (3)
  1. POLYETHYLENE GLYCOL [Suspect]
     Active Substance: POLYETHYLENE GLYCOLS
     Dosage: 0.8 MILLIGRAM/KILOGRAM, QD, MAINTENANCE THERAPY
     Route: 048
  2. POLYETHYLENE GLYCOL [Suspect]
     Active Substance: POLYETHYLENE GLYCOLS
     Indication: CONSTIPATION
     Dosage: 1.5 MILLIGRAM/KILOGRAM, QD, DISIMPACTION DOSE
     Route: 048
  3. POLYETHYLENE GLYCOL [Suspect]
     Active Substance: POLYETHYLENE GLYCOLS
     Dosage: 0.8 MILLIGRAM/KILOGRAM, QD, MAINTENANCE THERAPY, RESTARTED AFTER 7?10 DAYS
     Route: 048

REACTIONS (2)
  - Hypersensitivity [Recovered/Resolved]
  - Penile swelling [Recovered/Resolved]
